FAERS Safety Report 7158229-8 (Version None)
Quarter: 2010Q4

REPORT INFORMATION
  Report Type: 
  Country: None (occurrence: None)
  Receive Date: 20101214
  Receipt Date: 20100326
  Transmission Date: 20110411
  Serious: No
  Sender: FDA-Public Use
  Company Number: US-ASTRAZENECA-2010SE13572

PATIENT
  Age: 71 Year
  Sex: Male

DRUGS (3)
  1. CRESTOR [Suspect]
     Indication: BLOOD CHOLESTEROL ABNORMAL
     Route: 048
     Dates: start: 20091101
  2. METOPROLOL [Concomitant]
  3. CALCIUM CHANNEL BLOCKER [Concomitant]

REACTIONS (1)
  - GINGIVAL BLEEDING [None]
